FAERS Safety Report 17857228 (Version 2)
Quarter: 2020Q3

REPORT INFORMATION
  Report Type: Report from Study
  Country: US (occurrence: US)
  Receive Date: 20200603
  Receipt Date: 20200721
  Transmission Date: 20201103
  Serious: Yes (Other)
  Sender: FDA-Public Use
  Company Number: US-INCYTE CORPORATION-2020IN005023

PATIENT

DRUGS (5)
  1. SYNTHROID [Concomitant]
     Active Substance: LEVOTHYROXINE SODIUM
     Indication: PRODUCT USED FOR UNKNOWN INDICATION
     Route: 065
  2. JAKAFI [Suspect]
     Active Substance: RUXOLITINIB
     Indication: POLYCYTHAEMIA VERA
     Dosage: 20 MILLIGRAM, BID
     Route: 048
     Dates: start: 20200106, end: 20200505
  3. VITAMINS NOS [Concomitant]
     Active Substance: VITAMINS
     Indication: PRODUCT USED FOR UNKNOWN INDICATION
     Route: 065
  4. ZOCOR [Concomitant]
     Active Substance: SIMVASTATIN
     Indication: PRODUCT USED FOR UNKNOWN INDICATION
     Route: 065
  5. IBANDRONATE [Concomitant]
     Active Substance: IBANDRONATE SODIUM
     Indication: PRODUCT USED FOR UNKNOWN INDICATION
     Route: 065

REACTIONS (9)
  - Renal impairment [Unknown]
  - Red blood cell count abnormal [Recovering/Resolving]
  - Chills [Unknown]
  - Haemoglobin decreased [Unknown]
  - Oedema peripheral [Unknown]
  - Hepatic function abnormal [Unknown]
  - Platelet count abnormal [Recovering/Resolving]
  - Pyrexia [Recovered/Resolved]
  - Infection [Unknown]

NARRATIVE: CASE EVENT DATE: 202005
